FAERS Safety Report 4573062-9 (Version None)
Quarter: 2005Q1

REPORT INFORMATION
  Report Type: 
  Country: None (occurrence: None)
  Receive Date: 20050204
  Receipt Date: 20050119
  Transmission Date: 20050727
  Serious: Yes (Other)
  Sender: FDA-Public Use
  Company Number: PHBS2005IT01488

PATIENT
  Age: 72 Year
  Sex: Female

DRUGS (1)
  1. VISUDYNE [Suspect]
     Indication: CHOROIDAL NEOVASCULARISATION

REACTIONS (5)
  - CHOROIDAL NEOVASCULARISATION [None]
  - DISEASE RECURRENCE [None]
  - MACULAR DEGENERATION [None]
  - RETINAL DEGENERATION [None]
  - VISUAL ACUITY REDUCED [None]
